FAERS Safety Report 5606340-2 (Version None)
Quarter: 2008Q1

REPORT INFORMATION
  Report Type: 
  Country: None (occurrence: None)
  Receive Date: 20080129
  Receipt Date: 20070706
  Transmission Date: 20080703
  Serious: No
  Sender: FDA-Public Use
  Company Number: A0662197A

PATIENT
  Sex: Female

DRUGS (1)
  1. WELLBUTRIN [Suspect]
     Indication: DEPRESSION
     Dosage: 75MG TWICE PER DAY
     Route: 048
     Dates: start: 20070702

REACTIONS (1)
  - ANXIETY [None]
